FAERS Safety Report 5493063-6 (Version None)
Quarter: 2007Q4

REPORT INFORMATION
  Report Type: 
  Country: None (occurrence: None)
  Receive Date: 20071019
  Receipt Date: 20071010
  Transmission Date: 20080405
  Serious: Yes (Other)
  Sender: FDA-Public Use
  Company Number: 06H-163-0310415-00

PATIENT

DRUGS (5)
  1. MARCAINE HYDROCHLORIDE W/ EPINEPHRINE [Suspect]
     Indication: SURGERY
     Dosage: SEE IMAGE
     Route: 014
  2. MORPHINE SULFATE [Concomitant]
  3. KETOROLAC (KETOROLAC) [Concomitant]
  4. GLYCINE 1.5% [Concomitant]
  5. ANTIBIOTICS (ANTIBIOTICS) [Concomitant]

REACTIONS (1)
  - CHONDROLYSIS [None]
